FAERS Safety Report 5202405-8 (Version None)
Quarter: 2006Q4

REPORT INFORMATION
  Report Type: 
  Country: None (occurrence: None)
  Receive Date: 20061012
  Receipt Date: 20060825
  Transmission Date: 20070319
  Serious: No
  Sender: FDA-Public Use
  Company Number: 2006S1000166

PATIENT
  Age: 50 Year
  Sex: Male
  Weight: 159.1 kg

DRUGS (8)
  1. CUBICIN [Suspect]
     Indication: ABSCESS LIMB
     Dosage: 1 GM;Q24H;IV
     Route: 042
     Dates: start: 20060613, end: 20060627
  2. CUBICIN [Suspect]
     Indication: STAPHYLOCOCCAL INFECTION
     Dosage: 1 GM;Q24H;IV
     Route: 042
     Dates: start: 20060613, end: 20060627
  3. LISINOPRIL [Concomitant]
  4. FUROSEMIDE [Concomitant]
  5. NEURONTIN [Concomitant]
  6. VANCOMYCIN [Concomitant]
  7. CEFAZOLIN [Concomitant]
  8. CLINDAMYCIN [Concomitant]

REACTIONS (1)
  - BLOOD CREATINE PHOSPHOKINASE INCREASED [None]
